FAERS Safety Report 21500671 (Version 1)
Quarter: 2022Q4

REPORT INFORMATION
  Report Type: Report from Study
  Country: US (occurrence: US)
  Receive Date: 20221025
  Receipt Date: 20221025
  Transmission Date: 20230113
  Serious: No
  Sender: FDA-Public Use
  Company Number: US-ABBVIE-4161598

PATIENT
  Sex: Female

DRUGS (4)
  1. IMBRUVICA [Suspect]
     Active Substance: IBRUTINIB
     Indication: Waldenstrom^s macroglobulinaemia
     Route: 048
  2. PFIZER-BIONTECH COVID-19 VACCINE [Concomitant]
     Active Substance: TOZINAMERAN
     Indication: COVID-19 immunisation
     Dosage: FIRST DOSE
     Route: 030
     Dates: start: 20210223, end: 20210223
  3. PFIZER-BIONTECH COVID-19 VACCINE [Concomitant]
     Active Substance: TOZINAMERAN
     Indication: COVID-19 immunisation
     Dosage: SECOND DOSE
     Route: 030
     Dates: start: 20210318, end: 20210318
  4. Janssen Covid vaccine [Concomitant]
     Indication: COVID-19 immunisation
     Dosage: THIRD DOSE (BOOSTER DOSE)?JOHNSON + JOHNSON COVID VACCINE
     Route: 030
     Dates: start: 20210620, end: 20210620

REACTIONS (2)
  - Stomatitis [Recovering/Resolving]
  - Diarrhoea [Recovering/Resolving]
